FAERS Safety Report 6124901-1 (Version None)
Quarter: 2009Q1

REPORT INFORMATION
  Report Type: 
  Country: None (occurrence: None)
  Receive Date: 20090319
  Receipt Date: 20090316
  Transmission Date: 20090719
  Serious: Yes (Hospitalization)
  Sender: FDA-Public Use
  Company Number: FR-ROXANE LABORATORIES, INC.-2009-RO-00236RO

PATIENT
  Age: 49 Year
  Sex: Male

DRUGS (10)
  1. PREDNISONE [Suspect]
     Indication: COLITIS ULCERATIVE
     Dates: start: 20050501
  2. AZATHIOPRINE [Suspect]
     Dates: start: 20050501
  3. MESALAZINE [Suspect]
     Indication: COLITIS ULCERATIVE
  4. MESALAZINE [Suspect]
  5. ALUMINUM HYDROXIDE AND MAGNESIUM TRISILICATE [Suspect]
     Indication: COLITIS ULCERATIVE
     Dates: start: 20050501
  6. GENTAMICIN [Suspect]
     Indication: EVIDENCE BASED TREATMENT
     Dates: start: 20050501
  7. AMOXICILLIN AND CLAVULANATE POTASSIUM [Suspect]
     Indication: EVIDENCE BASED TREATMENT
     Dates: start: 20050501
  8. PREDNISOLONE [Concomitant]
  9. PREDNISOLONE [Concomitant]
  10. CORTICOTHERAPY [Concomitant]
     Indication: ACUTE FEBRILE NEUTROPHILIC DERMATOSIS

REACTIONS (1)
  - ACUTE FEBRILE NEUTROPHILIC DERMATOSIS [None]
